FAERS Safety Report 17324380 (Version 1)
Quarter: 2020Q1

REPORT INFORMATION
  Report Type: Spontaneous
  Country: ES (occurrence: ES)
  Receive Date: 20200127
  Receipt Date: 20200127
  Transmission Date: 20200409
  Serious: Yes (Hospitalization)
  Sender: FDA-Public Use
  Company Number: ES-SUN PHARMACEUTICAL INDUSTRIES LTD-2020RR-234519

PATIENT
  Age: 64 Year
  Sex: Female

DRUGS (4)
  1. LORMETAZEPAM(88A) [Interacting]
     Active Substance: LORMETAZEPAM
     Indication: INTENTIONAL OVERDOSE
     Dosage: IN TOTAL
     Route: 048
     Dates: start: 20190726, end: 20190728
  2. LEVOTIROXINA SODICA (1842SO) [Concomitant]
     Indication: HYPOTHYROIDISM
     Dosage: 425 MICROGRAM, WEEKLY
     Route: 048
     Dates: start: 201409
  3. OLANZAPINE. [Suspect]
     Active Substance: OLANZAPINE
     Indication: INTENTIONAL OVERDOSE
     Dosage: IN TOTAL
     Route: 048
     Dates: start: 20190726, end: 20190728
  4. CLORURO DE LITIO (1071CL) [Interacting]
     Active Substance: LITHIUM CHLORIDE
     Indication: INTENTIONAL OVERDOSE
     Dosage: IN TOTAL
     Route: 048
     Dates: start: 20190726, end: 20190728

REACTIONS (2)
  - Confusional state [Recovered/Resolved]
  - Antipsychotic drug level above therapeutic [Recovered/Resolved]

NARRATIVE: CASE EVENT DATE: 20190728
